FAERS Safety Report 25313045 (Version 1)
Quarter: 2025Q2

REPORT INFORMATION
  Report Type: Spontaneous
  Country: US (occurrence: None)
  Receive Date: 20250513
  Receipt Date: 20250513
  Transmission Date: 20250717
  Serious: No
  Sender: FDA-CTU
  Company Number: None

PATIENT
  Age: 73 Year
  Sex: Female

DRUGS (7)
  1. XDEMVY [Suspect]
     Active Substance: LOTILANER
     Dates: start: 20250513
  2. METFORMIN [Concomitant]
     Active Substance: METFORMIN HYDROCHLORIDE
  3. CALCIUM [Concomitant]
     Active Substance: CALCIUM
  4. EZETIMIBE [Concomitant]
     Active Substance: EZETIMIBE
  5. ATORVASTATIN [Concomitant]
     Active Substance: ATORVASTATIN
  6. AMLODIPINE [Concomitant]
     Active Substance: AMLODIPINE BESYLATE
  7. FOLIC ACID [Concomitant]
     Active Substance: FOLIC ACID

REACTIONS (4)
  - Swollen tongue [None]
  - Oral discomfort [None]
  - Lip swelling [None]
  - Drug hypersensitivity [None]

NARRATIVE: CASE EVENT DATE: 20250513
